FAERS Safety Report 21787171 (Version 1)
Quarter: 2022Q4

REPORT INFORMATION
  Report Type: Spontaneous
  Country: AU (occurrence: AU)
  Receive Date: 20221228
  Receipt Date: 20221228
  Transmission Date: 20230113
  Serious: Yes (Hospitalization, Other)
  Sender: FDA-Public Use
  Company Number: AU-KYOWAKIRIN-2022AKK020187

PATIENT

DRUGS (1)
  1. CRYSVITA [Suspect]
     Active Substance: BUROSUMAB-TWZA
     Indication: Product used for unknown indication
     Dosage: 90 MG
     Route: 065
     Dates: start: 20221130

REACTIONS (13)
  - Anaphylactic reaction [Unknown]
  - Pharyngeal swelling [Unknown]
  - Swollen tongue [Unknown]
  - Cough [Unknown]
  - Chest discomfort [Unknown]
  - Chills [Unknown]
  - Hypotension [Unknown]
  - Pyrexia [Unknown]
  - Back pain [Unknown]
  - Arthralgia [Unknown]
  - Headache [Unknown]
  - Dizziness [Unknown]
  - Product storage error [Unknown]

NARRATIVE: CASE EVENT DATE: 20221203
